FAERS Safety Report 18346277 (Version 1)
Quarter: 2020Q4

REPORT INFORMATION
  Report Type: Report from Study
  Country: None (occurrence: CO)
  Receive Date: 20201006
  Receipt Date: 20201006
  Transmission Date: 20210114
  Serious: Yes (Other)
  Sender: FDA-Public Use
  Company Number: CO-ABBVIE-20K-036-3541101-00

PATIENT
  Sex: Female
  Weight: 56 kg

DRUGS (3)
  1. LORATADINE. [Concomitant]
     Active Substance: LORATADINE
     Indication: RHINITIS
     Route: 048
  2. HUMIRA [Suspect]
     Active Substance: ADALIMUMAB
     Indication: COLITIS ULCERATIVE
     Route: 058
     Dates: end: 20200808
  3. HUMIRA [Suspect]
     Active Substance: ADALIMUMAB
     Indication: COLITIS ULCERATIVE
     Route: 058
     Dates: start: 20140408

REACTIONS (7)
  - Malaise [Recovered/Resolved]
  - Immunodeficiency [Not Recovered/Not Resolved]
  - COVID-19 [Recovered/Resolved]
  - Haematochezia [Not Recovered/Not Resolved]
  - Frequent bowel movements [Not Recovered/Not Resolved]
  - Lung disorder [Recovered/Resolved]
  - Diarrhoea [Not Recovered/Not Resolved]

NARRATIVE: CASE EVENT DATE: 202008
